FAERS Safety Report 17839576 (Version 1)
Quarter: 2020Q2

REPORT INFORMATION
  Report Type: Spontaneous
  Country: US (occurrence: US)
  Receive Date: 20200529
  Receipt Date: 20200529
  Transmission Date: 20200714
  Serious: No
  Sender: FDA-Public Use
  Company Number: None

PATIENT
  Age: 42 Year
  Sex: Female
  Weight: 74.25 kg

DRUGS (2)
  1. GABAPENTIN. [Suspect]
     Active Substance: GABAPENTIN
     Indication: TRIGEMINAL NEURALGIA
     Route: 048
     Dates: start: 20141104, end: 20191115
  2. MULTIVITAMINS [Concomitant]
     Active Substance: VITAMINS

REACTIONS (19)
  - Fatigue [None]
  - Speech disorder [None]
  - Peripheral swelling [None]
  - Dry mouth [None]
  - Impaired healing [None]
  - Constipation [None]
  - Anxiety [None]
  - Weight increased [None]
  - Cognitive disorder [None]
  - Contusion [None]
  - Vision blurred [None]
  - Clumsiness [None]
  - Diarrhoea [None]
  - Hot flush [None]
  - Swelling [None]
  - Pain [None]
  - Amnesia [None]
  - Loss of personal independence in daily activities [None]
  - Neuralgia [None]

NARRATIVE: CASE EVENT DATE: 20141104
